FAERS Safety Report 9494098 (Version 1)
Quarter: 2013Q3

REPORT INFORMATION
  Report Type: Spontaneous
  Country: IT (occurrence: None)
  Receive Date: 20130827
  Receipt Date: 20130827
  Transmission Date: 20140515
  Serious: Yes (Hospitalization)
  Sender: FDA-Public Use
  Company Number: 2013AP007478

PATIENT
  Age: 23 Year
  Sex: Female

DRUGS (1)
  1. CLARITHROMYCIN (CLARITHROMYCIN) [Suspect]
     Indication: AGGRESSION
     Route: 048
     Dates: start: 20130710, end: 20130715

REACTIONS (2)
  - Angioedema [None]
  - Urticaria [None]
